FAERS Safety Report 23624432 (Version 1)
Quarter: 2024Q1

REPORT INFORMATION
  Report Type: Spontaneous
  Country: US (occurrence: US)
  Receive Date: 20240312
  Receipt Date: 20240312
  Transmission Date: 20240409
  Serious: No
  Sender: FDA-Public Use
  Company Number: US-PCCINC-2024-PPL-000161

PATIENT

DRUGS (1)
  1. GABLOFEN [Suspect]
     Active Substance: BACLOFEN
     Indication: Muscle spasticity
     Dosage: 797 MICROGRAM PER DAY
     Route: 037

REACTIONS (1)
  - Muscle spasticity [Not Recovered/Not Resolved]
